FAERS Safety Report 12074235 (Version 1)
Quarter: 2016Q1

REPORT INFORMATION
  Report Type: Spontaneous
  Country: JP (occurrence: JP)
  Receive Date: 20160212
  Receipt Date: 20160212
  Transmission Date: 20160526
  Serious: Yes (Other)
  Sender: FDA-Public Use
  Company Number: JP-BRISTOL-MYERS SQUIBB COMPANY-BMS-2015-036043

PATIENT
  Age: 87 Year
  Sex: Male
  Weight: 48 kg

DRUGS (2)
  1. CETUXIMAB [Suspect]
     Active Substance: CETUXIMAB
     Indication: OROPHARYNGEAL CANCER
     Dosage: 375 MG, QWK
     Route: 042
     Dates: start: 20150427, end: 20150511
  2. MINOMYCIN [Suspect]
     Active Substance: MINOCYCLINE HYDROCHLORIDE
     Indication: SKIN REACTION
     Dosage: 100 MG, BID
     Route: 048
     Dates: start: 20150427, end: 20150523

REACTIONS (2)
  - Pneumonitis [Not Recovered/Not Resolved]
  - Pharyngeal inflammation [Recovering/Resolving]

NARRATIVE: CASE EVENT DATE: 20150522
